FAERS Safety Report 9257696 (Version 1)
Quarter: 2013Q2

REPORT INFORMATION
  Report Type: Spontaneous
  Country: US (occurrence: None)
  Receive Date: 20130424
  Receipt Date: 20130424
  Transmission Date: 20140414
  Serious: Yes (Life-Threatening, Disabling)
  Sender: FDA-Public Use
  Company Number: None

PATIENT
  Age: 36 Year
  Sex: Female
  Weight: 113.4 kg

DRUGS (2)
  1. LYRICA [Suspect]
     Indication: HERPES ZOSTER
     Dosage: 50-75 MG
     Route: 048
     Dates: start: 20130114, end: 20130219
  2. LYRICA [Suspect]
     Indication: NEURALGIA
     Dosage: 50-75 MG
     Route: 048
     Dates: start: 20130114, end: 20130219

REACTIONS (11)
  - Oedema peripheral [None]
  - Oedema peripheral [None]
  - General physical health deterioration [None]
  - Activities of daily living impaired [None]
  - Rhabdomyolysis [None]
  - Renal failure [None]
  - Neuralgia [None]
  - Memory impairment [None]
  - Speech disorder [None]
  - Paraesthesia [None]
  - Poisoning [None]
